FAERS Safety Report 11591367 (Version 1)
Quarter: 2015Q4

REPORT INFORMATION
  Report Type: Spontaneous
  Country: FR (occurrence: FR)
  Receive Date: 20151004
  Receipt Date: 20151004
  Transmission Date: 20160304
  Serious: Yes (Other)
  Sender: FDA-Public Use
  Company Number: FR-ROCHE-1633851

PATIENT
  Age: 67 Year
  Sex: Female

DRUGS (6)
  1. LYRICA [Concomitant]
     Active Substance: PREGABALIN
  2. ZELBORAF [Suspect]
     Active Substance: VEMURAFENIB
     Indication: HAIRY CELL LEUKAEMIA
     Dosage: DOSE 8 TABS/DAY
     Route: 048
     Dates: start: 20131009
  3. ZELBORAF [Suspect]
     Active Substance: VEMURAFENIB
     Dosage: DOSE 6 TABS/ DAY
     Route: 048
  4. ZELBORAF [Suspect]
     Active Substance: VEMURAFENIB
     Dosage: DOSE 2 TABS/DAY
     Route: 048
  5. OXYCONTIN [Concomitant]
     Active Substance: OXYCODONE HYDROCHLORIDE
  6. ZELBORAF [Suspect]
     Active Substance: VEMURAFENIB
     Dosage: DOSE 4 TABS/ DAY
     Route: 048

REACTIONS (2)
  - Off label use [Unknown]
  - Dermatitis bullous [Recovering/Resolving]

NARRATIVE: CASE EVENT DATE: 201508
